FAERS Safety Report 8830132 (Version 1)
Quarter: 2012Q4

REPORT INFORMATION
  Report Type: Spontaneous
  Country: US (occurrence: None)
  Receive Date: 20121005
  Receipt Date: 20121005
  Transmission Date: 20130627
  Serious: Yes (Other)
  Sender: FDA-Public Use
  Company Number: None

PATIENT
  Age: 49 Year
  Sex: Male

DRUGS (13)
  1. LATUDA [Suspect]
     Indication: BIPOLAR II DISORDER
     Dosage: 40 mg QD PO
intermittent 9/1/12-9/17/12
     Route: 048
     Dates: start: 20120901, end: 20120917
  2. CYMBALTA [Concomitant]
  3. TRAZODONE [Concomitant]
  4. TESTIM [Concomitant]
  5. ROPINIROLE [Concomitant]
  6. COLCHICINE [Concomitant]
  7. LIPITOR [Concomitant]
  8. LISINOPRIL [Concomitant]
  9. MELOXICAM [Concomitant]
  10. ROSULA [Concomitant]
  11. HALOBETASOL PROPIONATE [Concomitant]
  12. VITAMIN D [Concomitant]
  13. CO-Q10 [Concomitant]

REACTIONS (13)
  - Pain in extremity [None]
  - Flushing [None]
  - Hyperhidrosis [None]
  - Anxiety [None]
  - Restlessness [None]
  - Musculoskeletal stiffness [None]
  - Pyrexia [None]
  - Agitation [None]
  - Affect lability [None]
  - Tearfulness [None]
  - Blood pressure increased [None]
  - Disorientation [None]
  - Neuroleptic malignant syndrome [None]
